FAERS Safety Report 7642132-0 (Version None)
Quarter: 2011Q3

REPORT INFORMATION
  Report Type: 
  Country: None (occurrence: None)
  Receive Date: 20110728
  Receipt Date: 20110725
  Transmission Date: 20111222
  Serious: Yes (Life-Threatening, Hospitalization)
  Sender: FDA-Public Use
  Company Number: SE-CEPHALON-2011003954

PATIENT

DRUGS (3)
  1. BENDAMUSTINE HCL [Suspect]
     Route: 042
     Dates: start: 20110622
  2. LENALIDOMIDE [Suspect]
     Dates: start: 20110622
  3. RITUXIMAB [Suspect]
     Dates: start: 20110622

REACTIONS (1)
  - BONE MARROW FAILURE [None]
